FAERS Safety Report 24412333 (Version 1)
Quarter: 2024Q4

REPORT INFORMATION
  Report Type: Spontaneous
  Country: US (occurrence: None)
  Receive Date: 20241008
  Receipt Date: 20241008
  Transmission Date: 20250115
  Serious: Yes (Hospitalization)
  Sender: Public
  Company Number: None

PATIENT
  Age: 71 Year
  Sex: Male
  Weight: 108 kg

DRUGS (2)
  1. IPILIMUMAB [Suspect]
     Active Substance: IPILIMUMAB
     Dates: end: 20240827
  2. NIVOLUMAB [Suspect]
     Active Substance: NIVOLUMAB
     Dates: end: 20240827

REACTIONS (8)
  - Confusional state [None]
  - Acute kidney injury [None]
  - Hypothyroidism [None]
  - Adrenal insufficiency [None]
  - Neuritis [None]
  - Liver function test increased [None]
  - Facial paralysis [None]
  - Cerebral infarction [None]

NARRATIVE: CASE EVENT DATE: 20240930
